FAERS Safety Report 16021077 (Version 1)
Quarter: 2019Q2

REPORT INFORMATION
  Report Type: Spontaneous
  Country: US (occurrence: US)
  Receive Date: 20190228
  Receipt Date: 20190228
  Transmission Date: 20190711
  Serious: Yes (Disabling)
  Sender: FDA-Public Use
  Company Number: None

PATIENT
  Age: 60 Year
  Sex: Male
  Weight: 71.1 kg

DRUGS (6)
  1. EZETIMIDE 10 MG [Concomitant]
     Active Substance: EZETIMIBE
  2. COENZYME Q10 100 MG THREE TIMES DAILY [Concomitant]
  3. REPATHA [Suspect]
     Active Substance: EVOLOCUMAB
     Dosage: ?          QUANTITY:1 INJECTION(S);?
     Route: 030
     Dates: start: 20181227, end: 20190117
  4. ATORVASTIN 10 MG [Concomitant]
  5. ASPIRIN 81 MG [Concomitant]
     Active Substance: ASPIRIN
  6. METOPROLOL SUCCINATE 25 MG 24H [Concomitant]

REACTIONS (7)
  - Rhinorrhoea [None]
  - Lacrimation increased [None]
  - Pain in extremity [None]
  - Palpitations [None]
  - Insomnia [None]
  - Confusional state [None]
  - Myalgia [None]

NARRATIVE: CASE EVENT DATE: 20190110
